FAERS Safety Report 6065682-X (Version None)
Quarter: 2009Q1

REPORT INFORMATION
  Report Type: 
  Country: None (occurrence: None)
  Receive Date: 20090130
  Receipt Date: 20090114
  Transmission Date: 20090719
  Serious: Yes (Other)
  Sender: FDA-Public Use
  Company Number: 8041590

PATIENT
  Age: 30 Year
  Sex: Female
  Weight: 60 kg

DRUGS (5)
  1. KEPPRA [Suspect]
     Dosage: 200 MG/D
     Dates: start: 20081127
  2. PERENTEROL (SACCHAROMYVES BOULARDII) [Concomitant]
  3. VALPROATE SODIUM [Concomitant]
  4. CLEXANE [Concomitant]
  5. MUTAFLOR [Concomitant]

REACTIONS (7)
  - ACUTE MYOCARDIAL INFARCTION [None]
  - ALOPECIA [None]
  - GASTROINTESTINAL SOUNDS ABNORMAL [None]
  - LOCKED-IN SYNDROME [None]
  - POLYURIA [None]
  - RASH PUSTULAR [None]
  - SALIVARY HYPERSECRETION [None]
